FAERS Safety Report 7324236-5 (Version None)
Quarter: 2011Q1

REPORT INFORMATION
  Report Type: 
  Country: None (occurrence: None)
  Receive Date: 20110202
  Receipt Date: 20101208
  Transmission Date: 20110831
  Serious: No
  Sender: FDA-Public Use
  Company Number: 2010-15868

PATIENT
  Age: 87 Year
  Sex: Male
  Weight: 88.9 kg

DRUGS (1)
  1. RAPAFLO [Suspect]
     Indication: BENIGN PROSTATIC HYPERPLASIA
     Dosage: 1 TABLET, DAILY WITH MEALS, ORAL
     Route: 048
     Dates: start: 20101108, end: 20101206

REACTIONS (2)
  - OEDEMA PERIPHERAL [None]
  - DRUG INEFFECTIVE [None]
